FAERS Safety Report 10453638 (Version 2)
Quarter: 2014Q3

REPORT INFORMATION
  Report Type: Spontaneous
  Country: US (occurrence: US)
  Receive Date: 20140915
  Receipt Date: 20140915
  Transmission Date: 20150326
  Serious: Yes (Hospitalization)
  Sender: FDA-Public Use
  Company Number: US-LUNDBECK-DKLU1100754

PATIENT
  Sex: Female
  Weight: 5 kg

DRUGS (5)
  1. SABRIL [Suspect]
     Active Substance: VIGABATRIN
     Indication: INFANTILE SPASMS
     Dates: start: 20140425
  2. PHENOBARBITAL. [Suspect]
     Active Substance: PHENOBARBITAL
     Indication: PRODUCT USED FOR UNKNOWN INDICATION
  3. SABRIL [Suspect]
     Active Substance: VIGABATRIN
  4. SABRIL [Suspect]
     Active Substance: VIGABATRIN
  5. SABRIL [Suspect]
     Active Substance: VIGABATRIN

REACTIONS (2)
  - Somnolence [Recovered/Resolved]
  - Hypophagia [Recovered/Resolved]
